FAERS Safety Report 6793155-5 (Version None)
Quarter: 2010Q2

REPORT INFORMATION
  Report Type: 
  Country: None (occurrence: None)
  Receive Date: 20100624
  Receipt Date: 20090624
  Transmission Date: 20101027
  Serious: Yes (Death)
  Sender: FDA-Public Use
  Company Number: US-MYLANLABS-2009S1010430

PATIENT
  Age: 57 Year
  Sex: Female
  Weight: 38.56 kg

DRUGS (1)
  1. CLOZAPINE [Suspect]
     Indication: DEPRESSION
     Route: 048
     Dates: start: 20001201, end: 20090101

REACTIONS (1)
  - DEATH [None]
